FAERS Safety Report 8083365-1 (Version None)
Quarter: 2012Q1

REPORT INFORMATION
  Report Type: 
  Country: None (occurrence: None)
  Receive Date: 20120127
  Receipt Date: 20110113
  Transmission Date: 20120608
  Serious: No
  Sender: FDA-Public Use
  Company Number: US-ABBOTT-11P-163-0697770-00

PATIENT
  Sex: Male
  Weight: 136.2 kg

DRUGS (3)
  1. HUMALIN N INSULIN [Concomitant]
     Indication: DIABETES MELLITUS
     Dosage: 60 UNITS
     Route: 058
  2. HUMALIN R INSULIN [Concomitant]
     Indication: DIABETES MELLITUS
     Route: 058
  3. HUMIRA [Suspect]
     Indication: PSORIASIS
     Dates: start: 20090101

REACTIONS (1)
  - INJECTION SITE PAIN [None]
